FAERS Safety Report 6863443-2 (Version None)
Quarter: 2010Q3

REPORT INFORMATION
  Report Type: 
  Country: None (occurrence: None)
  Receive Date: 20100721
  Receipt Date: 20100709
  Transmission Date: 20110219
  Serious: Yes (Other)
  Sender: FDA-Public Use
  Company Number: BE-PFIZER INC-2010083255

PATIENT
  Sex: Female
  Weight: 45 kg

DRUGS (6)
  1. LYRICA [Suspect]
     Indication: NEURALGIA
     Dosage: 75 MG, 2X/DAY
     Route: 048
     Dates: start: 20100412, end: 20100421
  2. LYRICA [Suspect]
     Indication: MULTIPLE SCLEROSIS
  3. ALENDRONATE SODIUM [Concomitant]
     Dosage: 70 MG, UNK
     Route: 048
     Dates: start: 20081029
  4. LEVOTHYROXINE SODIUM [Concomitant]
     Dosage: 50 UG, UNK
     Route: 048
     Dates: start: 20060519
  5. CALCIUM CARBONATE/COLECALCIFEROL [Concomitant]
     Dosage: UNK
     Route: 048
     Dates: start: 20081029
  6. VITAMIN B COMPLEX CAP [Concomitant]
     Route: 048

REACTIONS (1)
  - MULTIPLE SCLEROSIS RELAPSE [None]
